FAERS Safety Report 4298457-2 (Version None)
Quarter: 2004Q1

REPORT INFORMATION
  Report Type: 
  Country: None (occurrence: None)
  Receive Date: 20040218
  Receipt Date: 20030814
  Transmission Date: 20041129
  Serious: Yes (Other)
  Sender: FDA-Public Use
  Company Number: US-BRISTOL-MYERS SQUIBB COMPANY-12357927

PATIENT
  Age: 49 Year
  Sex: Male

DRUGS (8)
  1. STADOL [Suspect]
     Indication: HEADACHE
     Route: 045
     Dates: start: 19920101, end: 19940801
  2. WELLBUTRIN [Concomitant]
  3. OXAZEPAM [Concomitant]
  4. ACETAMINOPHEN W/ PROPOXYPHENE HCL [Concomitant]
  5. SOMA [Concomitant]
  6. DARVOCET-N 100 [Concomitant]
  7. TYLOX [Concomitant]
  8. TALWIN [Concomitant]

REACTIONS (5)
  - AGGRESSION [None]
  - DEPENDENCE [None]
  - DRUG ADDICT [None]
  - LIBIDO DECREASED [None]
  - SUICIDAL IDEATION [None]
